FAERS Safety Report 7083942-0 (Version None)
Quarter: 2010Q4

REPORT INFORMATION
  Report Type: 
  Country: None (occurrence: None)
  Receive Date: 20101104
  Receipt Date: 20101025
  Transmission Date: 20110411
  Serious: Yes (Death)
  Sender: FDA-Public Use
  Company Number: IL-ACTELION-A-CH2010-40982

PATIENT
  Age: 17 Year
  Sex: Male

DRUGS (1)
  1. BOSENTAN TABLET 62.5 MG ROW [Suspect]
     Indication: PULMONARY ARTERIAL HYPERTENSION
     Dosage: 62.5 MG, BID
     Route: 048
     Dates: start: 20100201

REACTIONS (1)
  - SCLERODERMA [None]
